FAERS Safety Report 16681683 (Version 19)
Quarter: 2022Q4

REPORT INFORMATION
  Report Type: Other
  Country: DE (occurrence: None)
  Receive Date: 20190808
  Receipt Date: 20221123
  Transmission Date: 20230112
  Serious: Yes (Hospitalization, Other)
  Sender: FDA-Public Use
  Company Number: DE-ROCHE-2242179

PATIENT
  Age: 31 Year
  Sex: Female
  Weight: 70 kg

DRUGS (15)
  1. OCREVUS [Suspect]
     Active Substance: OCRELIZUMAB
     Indication: Relapsing-remitting multiple sclerosis
     Route: 042
     Dates: start: 20180307, end: 20180307
  2. OCREVUS [Suspect]
     Active Substance: OCRELIZUMAB
     Route: 042
     Dates: start: 20180321, end: 20180321
  3. OCREVUS [Suspect]
     Active Substance: OCRELIZUMAB
     Dosage: 27/MAR/2019, 23/SEP/2019, 09/APR/2020 AND 03/NOV/2020 RECEIVED SAME SUBSEQUENT DOSE
     Route: 042
     Dates: start: 20181020
  4. OCREVUS [Suspect]
     Active Substance: OCRELIZUMAB
     Route: 042
     Dates: start: 20210616
  5. OCREVUS [Suspect]
     Active Substance: OCRELIZUMAB
     Route: 042
     Dates: start: 20180307
  6. COVID-19 VACCINE NOS [Suspect]
     Active Substance: COVID-19 VACCINE NOS
     Indication: COVID-19 prophylaxis
     Route: 065
  7. CITALOPRAM [Concomitant]
     Active Substance: CITALOPRAM HYDROBROMIDE
  8. FRANKINCENSE [Concomitant]
  9. IBUPROFEN [Concomitant]
     Active Substance: IBUPROFEN
  10. ACETAMINOPHEN [Concomitant]
     Active Substance: ACETAMINOPHEN
     Dosage: THYME DROPS AS NEEDED
  11. CIPRALEX [Concomitant]
     Active Substance: ESCITALOPRAM OXALATE
     Indication: Depression
     Route: 048
     Dates: start: 2017
  12. CINNARIZINE\DIMENHYDRINATE [Concomitant]
     Active Substance: CINNARIZINE\DIMENHYDRINATE
     Indication: Dizziness
     Dosage: 20/ 40 MG
     Dates: start: 2015
  13. DIMETHINDENE [Concomitant]
     Active Substance: DIMETHINDENE
  14. RANITIDINE [Concomitant]
     Active Substance: RANITIDINE
  15. PREDNISOLONE [Concomitant]
     Active Substance: PREDNISOLONE

REACTIONS (25)
  - Trigeminal neuralgia [Recovered/Resolved]
  - Pneumonia [Unknown]
  - Fatigue [Recovered/Resolved]
  - Diarrhoea [Recovering/Resolving]
  - Muscular weakness [Recovered/Resolved]
  - Paraesthesia [Recovering/Resolving]
  - Hypoaesthesia [Recovering/Resolving]
  - Fatigue [Recovered/Resolved]
  - Nasopharyngitis [Recovered/Resolved]
  - Pruritus [Recovered/Resolved]
  - Fatigue [Recovered/Resolved]
  - Bladder disorder [Recovering/Resolving]
  - Somnolence [Unknown]
  - Frequent bowel movements [Unknown]
  - Diarrhoea [Unknown]
  - Weight decreased [Unknown]
  - Depression [Unknown]
  - Lethargy [Recovered/Resolved]
  - Infection [Not Recovered/Not Resolved]
  - SARS-CoV-2 antibody test negative [Not Recovered/Not Resolved]
  - Dizziness [Recovered/Resolved]
  - Headache [Recovered/Resolved]
  - COVID-19 [Recovered/Resolved]
  - Cough [Recovering/Resolving]
  - Dyspnoea [Recovering/Resolving]

NARRATIVE: CASE EVENT DATE: 20180308
